FAERS Safety Report 19390655 (Version 5)
Quarter: 2021Q3

REPORT INFORMATION
  Report Type: Spontaneous
  Country: RU (occurrence: RU)
  Receive Date: 20210608
  Receipt Date: 20210826
  Transmission Date: 20211014
  Serious: Yes (Hospitalization)
  Sender: FDA-Public Use
  Company Number: RU-HIKMA PHARMACEUTICALS USA INC.-RU-H14001-21-02511

PATIENT
  Age: 62 Year
  Sex: Female

DRUGS (2)
  1. RIBOCARBO?L [Suspect]
     Active Substance: CARBOPLATIN
     Indication: CERVIX CARCINOMA
     Route: 042
     Dates: start: 20210414
  2. METOPROLOL. [Concomitant]
     Active Substance: METOPROLOL
     Indication: HYPERTENSION
     Route: 048
     Dates: start: 20210309

REACTIONS (1)
  - Female genital tract fistula [Recovering/Resolving]

NARRATIVE: CASE EVENT DATE: 20210419
